FAERS Safety Report 18319204 (Version 1)
Quarter: 2020Q3

REPORT INFORMATION
  Report Type: Spontaneous
  Country: US (occurrence: US)
  Receive Date: 20200928
  Receipt Date: 20200928
  Transmission Date: 20201103
  Serious: No
  Sender: FDA-Public Use
  Company Number: None

PATIENT
  Age: 59 Year
  Sex: Male

DRUGS (1)
  1. SILIQ [Suspect]
     Active Substance: BRODALUMAB
     Indication: PSORIASIS
     Dosage: ?          OTHER FREQUENCY:WK 0,1, AND 2  ;?
     Route: 058
     Dates: start: 202007

REACTIONS (2)
  - Blister infected [None]
  - Blister [None]
